FAERS Safety Report 4596201-2 (Version None)
Quarter: 2005Q1

REPORT INFORMATION
  Report Type: 
  Country: None (occurrence: None)
  Receive Date: 20050225
  Receipt Date: 20050211
  Transmission Date: 20050727
  Serious: Yes (Death, Hospitalization)
  Sender: FDA-Public Use
  Company Number: MEDI-0002886

PATIENT
  Age: 17 Month
  Sex: Male
  Weight: 10.5 kg

DRUGS (13)
  1. SYNAGIS [Suspect]
     Indication: ANTIVIRAL PROPHYLAXIS
     Dosage: SEE IMAGE
     Route: 030
     Dates: start: 20041104, end: 20050209
  2. SYNAGIS [Suspect]
     Indication: ANTIVIRAL PROPHYLAXIS
     Dosage: SEE IMAGE
     Route: 030
     Dates: start: 20041104
  3. SYNAGIS [Suspect]
     Indication: ANTIVIRAL PROPHYLAXIS
     Dosage: SEE IMAGE
     Route: 030
     Dates: start: 20041206
  4. SYNAGIS [Suspect]
     Indication: ANTIVIRAL PROPHYLAXIS
     Dosage: SEE IMAGE
     Route: 030
     Dates: start: 20050112
  5. SYNAGIS [Suspect]
  6. REGLAN [Concomitant]
  7. ALBUTEROL [Concomitant]
  8. SODIUM CHLORIDE 0.9% [Concomitant]
  9. OXYBUTYNIN CHLORIDE [Concomitant]
  10. LACRI-LUBE (PERTOLATUM, LANOLIN, MINERAL OIL LIGHT) [Concomitant]
  11. ATROVEN (IPRATROPIUM BROMIDE) [Concomitant]
  12. NYSTATIN [Concomitant]
  13. BACITRACIN (BACITRACIN) [Concomitant]

REACTIONS (6)
  - COLLAPSE OF LUNG [None]
  - CYANOSIS [None]
  - HAEMORRHAGE [None]
  - PNEUMONIA [None]
  - SKIN DISCOLOURATION [None]
  - TRACHEOSTOMY MALFUNCTION [None]
